FAERS Safety Report 20376826 (Version 3)
Quarter: 2022Q1

REPORT INFORMATION
  Report Type: Spontaneous
  Country: JP (occurrence: JP)
  Receive Date: 20220125
  Receipt Date: 20220210
  Transmission Date: 20220423
  Serious: Yes (Hospitalization, Other)
  Sender: FDA-Public Use
  Company Number: JP-MSD-M2020-17393

PATIENT
  Age: 71 Year
  Sex: Female
  Weight: 71 kg

DRUGS (5)
  1. KEYTRUDA [Suspect]
     Active Substance: PEMBROLIZUMAB
     Indication: Malignant melanoma stage IV
     Dosage: 200 MILLIGRAM, Q3W
     Route: 041
     Dates: start: 20200316, end: 20200812
  2. KEYTRUDA [Suspect]
     Active Substance: PEMBROLIZUMAB
     Dosage: UNK
     Route: 041
  3. NEXIUM [Suspect]
     Active Substance: ESOMEPRAZOLE MAGNESIUM
     Indication: Prophylaxis
     Dosage: 1 DOSAGE FORM, QD
     Route: 048
     Dates: start: 20191223, end: 20201028
  4. PREDONINE [Concomitant]
     Active Substance: PREDNISOLONE
     Indication: Rheumatoid arthritis
     Dosage: 4 MILLIGRAM, QD
     Route: 048
     Dates: start: 20191209, end: 20201028
  5. BILASTINE [Concomitant]
     Active Substance: BILASTINE
     Indication: Pruritus
     Dosage: 20 MILLIGRAM, QD
     Route: 048
     Dates: start: 20191209, end: 20201028

REACTIONS (3)
  - Rheumatoid arthritis [Unknown]
  - Pemphigoid [Recovering/Resolving]
  - Lichen planus [Recovered/Resolved]

NARRATIVE: CASE EVENT DATE: 20200701
